FAERS Safety Report 7826247-X (Version None)
Quarter: 2011Q4

REPORT INFORMATION
  Report Type: 
  Country: None (occurrence: None)
  Receive Date: 20111020
  Receipt Date: 20111011
  Transmission Date: 20120403
  Serious: No
  Sender: FDA-Public Use
  Company Number: US-BIOGENIDEC-2010BI025936

PATIENT
  Age: 32 Year
  Sex: Male

DRUGS (2)
  1. AVONEX [Concomitant]
     Indication: MULTIPLE SCLEROSIS
     Route: 030
     Dates: start: 20080110
  2. TYSABRI [Suspect]
     Indication: MULTIPLE SCLEROSIS
     Route: 042
     Dates: start: 20081230

REACTIONS (6)
  - MUSCLE SPASTICITY [None]
  - VISION BLURRED [None]
  - SOMNOLENCE [None]
  - DRY EYE [None]
  - MUSCULAR WEAKNESS [None]
  - FATIGUE [None]
